FAERS Safety Report 5812421-0 (Version None)
Quarter: 2008Q3

REPORT INFORMATION
  Report Type: 
  Country: None (occurrence: None)
  Receive Date: 20080711
  Receipt Date: 20080708
  Transmission Date: 20090109
  Serious: Yes (Hospitalization)
  Sender: FDA-Public Use
  Company Number: CAR-2008-030

PATIENT
  Age: 76 Year
  Sex: Female

DRUGS (6)
  1. SUCRALFATE [Suspect]
     Dosage: ORAL
     Route: 048
     Dates: end: 20080605
  2. ZOLPIDEM TARTRATE [Suspect]
     Dosage: ORAL
     Route: 048
     Dates: end: 20080605
  3. MOPRAL (OMEPRAZOLE) [Suspect]
     Dosage: ORAL
     Route: 048
     Dates: end: 20080609
  4. BETAHISTINE (BETAHISTINE) [Suspect]
     Dosage: ORAL
     Route: 048
     Dates: end: 20080605
  5. MORPHINE SULFATE [Suspect]
     Dosage: ORAL
     Route: 048
     Dates: end: 20080605
  6. PAROXETINE HCL [Suspect]
     Dosage: ORAL
     Route: 048
     Dates: end: 20080605

REACTIONS (3)
  - DRUG TOXICITY [None]
  - HYPONATRAEMIA [None]
  - INTENTIONAL DRUG MISUSE [None]
